FAERS Safety Report 5374159-6 (Version None)
Quarter: 2007Q2

REPORT INFORMATION
  Report Type: 
  Country: None (occurrence: None)
  Receive Date: 20070627
  Receipt Date: 20061205
  Transmission Date: 20071010
  Serious: Yes (Death)
  Sender: FDA-Public Use
  Company Number: 474181

PATIENT
  Age: 70 Year
  Sex: Female
  Weight: 66.7 kg

DRUGS (1)
  1. XELODA [Suspect]
     Indication: BREAST CANCER METASTATIC
     Dosage: 2 PER 1 DAY ORAL
     Route: 048
     Dates: start: 20060615, end: 20060720

REACTIONS (1)
  - BREAST CANCER METASTATIC [None]
